FAERS Safety Report 11875804 (Version 1)
Quarter: 2015Q4

REPORT INFORMATION
  Report Type: Spontaneous
  Country: CN (occurrence: CN)
  Receive Date: 20151229
  Receipt Date: 20151229
  Transmission Date: 20160305
  Serious: Yes (Other)
  Sender: FDA-Public Use
  Company Number: CN-BAYER-2015-067333

PATIENT
  Age: 64 Year
  Sex: Male

DRUGS (1)
  1. NEXAVAR [Suspect]
     Active Substance: SORAFENIB
     Indication: RENAL CELL CARCINOMA
     Dosage: 400 MG, BID
     Route: 048
     Dates: start: 20141117

REACTIONS (7)
  - Mouth ulceration [Recovering/Resolving]
  - Proteinuria [None]
  - Renal cell carcinoma [None]
  - Cachexia [None]
  - Diarrhoea [None]
  - Decreased appetite [None]
  - Palmar-plantar erythrodysaesthesia syndrome [Recovering/Resolving]
